FAERS Safety Report 10228130 (Version 2)
Quarter: 2017Q3

REPORT INFORMATION
  Report Type: Spontaneous
  Country: DE (occurrence: DE)
  Receive Date: 20140610
  Receipt Date: 20170707
  Transmission Date: 20171127
  Serious: Yes (Death, Other)
  Sender: FDA-Public Use
  Company Number: DE-ALEXION PHARMACEUTICALS INC.-A201402206

PATIENT

DRUGS (2)
  1. SOLIRIS [Suspect]
     Active Substance: ECULIZUMAB
     Indication: HAEMOLYTIC URAEMIC SYNDROME
     Route: 042
  2. SOLIRIS [Suspect]
     Active Substance: ECULIZUMAB
     Indication: OFF LABEL USE

REACTIONS (7)
  - Coma [Fatal]
  - Haemorrhage [Fatal]
  - Off label use [Unknown]
  - Cerebrovascular accident [Fatal]
  - Seizure [Fatal]
  - Acute kidney injury [Fatal]
  - Haemolytic uraemic syndrome [Fatal]
